FAERS Safety Report 6051775-X (Version None)
Quarter: 2009Q1

REPORT INFORMATION
  Report Type: 
  Country: None (occurrence: None)
  Receive Date: 20090126
  Receipt Date: 20090114
  Transmission Date: 20090719
  Serious: Yes (Death)
  Sender: FDA-Public Use
  Company Number: MY-PFIZER INC-2008159411

PATIENT
  Sex: Male

DRUGS (8)
  1. SUNITINIB MALATE [Suspect]
     Indication: HEPATIC NEOPLASM MALIGNANT
     Dosage: 25 MG, 1X/DAY
     Route: 048
     Dates: start: 20081013, end: 20081209
  2. BUSCOPAN [Concomitant]
     Indication: ABDOMINAL PAIN
     Dates: start: 20081224
  3. CEFUROXIME [Concomitant]
     Indication: INFECTION
     Dates: start: 20081223
  4. SPIRONOLACTONE [Concomitant]
     Indication: POLYURIA
     Dates: start: 20081211
  5. TRAMADOL HYDROCHLORIDE [Concomitant]
     Indication: PAIN
     Dates: start: 20081219
  6. NEXIUM [Concomitant]
     Indication: GASTRIC DISORDER
  7. DAONIL [Concomitant]
     Indication: DIABETES MELLITUS
     Dates: start: 19950101
  8. METFORMIN HYDROCHLORIDE [Concomitant]
     Indication: DIABETES MELLITUS
     Dates: start: 19950101

REACTIONS (1)
  - DEATH [None]
